FAERS Safety Report 6899406-0 (Version None)
Quarter: 2010Q3

REPORT INFORMATION
  Report Type: 
  Country: None (occurrence: None)
  Receive Date: 20100803
  Receipt Date: 20090527
  Transmission Date: 20110219
  Serious: No
  Sender: FDA-Public Use
  Company Number: US-PFIZER INC-2009180194

PATIENT
  Sex: Male
  Weight: 88.435 kg

DRUGS (4)
  1. GABAPENTIN [Suspect]
     Indication: HERPES ZOSTER
     Dosage: UNK
     Dates: start: 20090207, end: 20090201
  2. GABAPENTIN [Suspect]
     Indication: POST HERPETIC NEURALGIA
  3. LYRICA [Suspect]
     Indication: POST HERPETIC NEURALGIA
     Dosage: 75 MG, 2X/DAY
     Dates: start: 20090201
  4. HYDROCODONE [Suspect]
     Indication: PAIN
     Dosage: 500 MG, UNK

REACTIONS (4)
  - DISTURBANCE IN ATTENTION [None]
  - DRUG INEFFECTIVE [None]
  - MEMORY IMPAIRMENT [None]
  - WEIGHT INCREASED [None]
